FAERS Safety Report 8008992-9 (Version None)
Quarter: 2011Q4

REPORT INFORMATION
  Report Type: 
  Country: None (occurrence: None)
  Receive Date: 20111227
  Receipt Date: 20111221
  Transmission Date: 20120403
  Serious: No
  Sender: FDA-Public Use
  Company Number: US-PFIZER INC-2011310808

PATIENT
  Sex: Male

DRUGS (2)
  1. CARDIZEM [Concomitant]
  2. CELEBREX [Suspect]
     Indication: ARTHRALGIA
     Dosage: UNK, 1X/DAY
     Route: 048
     Dates: start: 20111101

REACTIONS (1)
  - EOSINOPHILIA [None]
